FAERS Safety Report 5174708-7 (Version None)
Quarter: 2006Q4

REPORT INFORMATION
  Report Type: 
  Country: None (occurrence: None)
  Receive Date: 20061206
  Receipt Date: 20061123
  Transmission Date: 20070319
  Serious: Yes (Other)
  Sender: FDA-Public Use
  Company Number: 2006145189

PATIENT
  Age: 70 Year
  Sex: Female

DRUGS (6)
  1. PREGABALIN (PREGABALIN) [Suspect]
     Indication: DIABETIC NEUROPATHY
     Dosage: 300 MG (150 MG, 1 D), ORAL
     Route: 048
     Dates: start: 20061115, end: 20061115
  2. ALL OTHER THERAPEUTIC PRODUCTS [Concomitant]
  3. CHINOTAL (PENTOXIFYLLINE) [Concomitant]
  4. MELOXICAM [Concomitant]
  5. THIOGAMMA (THIOCTIC ACID) [Concomitant]
  6. ALPRAZOLAM [Concomitant]

REACTIONS (3)
  - HYPERSENSITIVITY [None]
  - SWELLING FACE [None]
  - TONGUE PARALYSIS [None]
